FAERS Safety Report 8021132-5 (Version None)
Quarter: 2011Q4

REPORT INFORMATION
  Report Type: 
  Country: None (occurrence: None)
  Receive Date: 20111223
  Receipt Date: 20111215
  Transmission Date: 20120403
  Serious: Yes (Hospitalization)
  Sender: FDA-Public Use
  Company Number: AECAN201100238

PATIENT
  Age: 53 Year
  Sex: Female

DRUGS (14)
  1. PROLASTIN-C [Suspect]
     Indication: ALPHA-1 ANTI-TRYPSIN DEFICIENCY
     Dosage: 5400 MG;QW;IV
     Route: 042
     Dates: start: 20110713
  2. SPIRIVA [Concomitant]
  3. LYRICA [Concomitant]
  4. PREDNISONE TAB [Concomitant]
  5. ALBUTEROL SULFATE AUTOHALER [Concomitant]
  6. INFLUENZA VACCINE [Concomitant]
  7. AMOXICILLIN AND CLAVULANATE POTASSIUM [Concomitant]
  8. AVELOX [Concomitant]
  9. EFFEXOR [Concomitant]
  10. NAPROXEN [Concomitant]
  11. VARENICLINE TARTRATE [Concomitant]
  12. OXYCODONE HCL [Concomitant]
  13. SYMBICORT [Concomitant]
  14. DAXAS [Concomitant]

REACTIONS (2)
  - HEADACHE [None]
  - DYSPNOEA [None]
